FAERS Safety Report 4584685-5 (Version None)
Quarter: 2005Q1

REPORT INFORMATION
  Report Type: 
  Country: None (occurrence: None)
  Receive Date: 20050211
  Receipt Date: 20041203
  Transmission Date: 20050727
  Serious: Yes (Hospitalization, Other)
  Sender: FDA-Public Use
  Company Number: 2004115213

PATIENT
  Age: 65 Year
  Sex: Female

DRUGS (6)
  1. BEXTRA [Suspect]
     Indication: BACK DISORDER
     Dosage: 20 MG (20 MG, DAILY), ORAL
     Route: 048
  2. GABAPENTIN [Concomitant]
  3. LORAZEPAM [Concomitant]
  4. VICODIN (HYDROCODONE BITARTARATE, PARACETAMOL) [Concomitant]
  5. HYDROXYZINE EMBONATE (HYDROXYZINE EMBONATE) [Concomitant]
  6. FLUOXETINE HYDROCHLORIDE [Concomitant]

REACTIONS (7)
  - ABNORMAL SENSATION IN EYE [None]
  - CONDITION AGGRAVATED [None]
  - DRUG WITHDRAWAL SYNDROME [None]
  - EYE ROLLING [None]
  - HEADACHE [None]
  - KNEE ARTHROPLASTY [None]
  - STOMACH DISCOMFORT [None]
